FAERS Safety Report 11607983 (Version 1)
Quarter: 2015Q4

REPORT INFORMATION
  Report Type: Spontaneous
  Country: PL (occurrence: PL)
  Receive Date: 20151007
  Receipt Date: 20151007
  Transmission Date: 20160304
  Serious: Yes (Other)
  Sender: FDA-Public Use
  Company Number: PL-BAYER-2015-432050

PATIENT
  Age: 64 Year
  Sex: Female

DRUGS (1)
  1. ULTRAVIST [Suspect]
     Active Substance: IOPROMIDE
     Dosage: 50 ML, UNK
     Route: 042

REACTIONS (3)
  - Eye pruritus [Unknown]
  - Eyelid oedema [Unknown]
  - Eye irritation [Unknown]

NARRATIVE: CASE EVENT DATE: 20150305
